FAERS Safety Report 16296193 (Version 1)
Quarter: 2020Q3

REPORT INFORMATION
  Report Type: Spontaneous
  Country: US (occurrence: US)
  Receive Date: 20190509
  Receipt Date: 20190509
  Transmission Date: 20201104
  Serious: Yes (Hospitalization)
  Sender: FDA-Public Use
  Company Number: PHHY2019US103593

PATIENT
  Age: 66 Year
  Sex: Male

DRUGS (2)
  1. PHENAZOPYRIDINE. [Suspect]
     Active Substance: PHENAZOPYRIDINE
     Indication: DYSURIA
     Route: 065
  2. CARBAMAZEPINE. [Suspect]
     Active Substance: CARBAMAZEPINE
     Indication: SEIZURE
     Route: 065

REACTIONS (7)
  - Delirium [Unknown]
  - Pain [Unknown]
  - Behaviour disorder [Unknown]
  - Agitation [Recovered/Resolved]
  - Dementia [Unknown]
  - Urinary retention [Recovered/Resolved]
  - Condition aggravated [Recovered/Resolved]
